FAERS Safety Report 12732842 (Version 1)
Quarter: 2016Q3

REPORT INFORMATION
  Report Type: Spontaneous
  Country: US (occurrence: US)
  Receive Date: 20160910
  Receipt Date: 20160910
  Transmission Date: 20161109
  Serious: No
  Sender: FDA-Public Use
  Company Number: None

PATIENT
  Age: 68 Year
  Sex: Female
  Weight: 49.5 kg

DRUGS (11)
  1. VITAMIN E [Concomitant]
     Active Substance: .ALPHA.-TOCOPHEROL
  2. VIT K-2 [Concomitant]
  3. METRONIDAZOL [Suspect]
     Active Substance: METRONIDAZOLE
     Indication: CLOSTRIDIUM DIFFICILE INFECTION
     Dosage: 23 TABLETS 3 TIMES A DAY ORAL
     Route: 048
     Dates: start: 20160902, end: 20160910
  4. MAGNESIUM [Concomitant]
     Active Substance: MAGNESIUM
  5. FISH OIL [Concomitant]
     Active Substance: FISH OIL
  6. VIT B COMPLEX [Concomitant]
  7. SYNTHROID [Concomitant]
     Active Substance: LEVOTHYROXINE SODIUM
  8. VITAMIN D [Concomitant]
     Active Substance: CHOLECALCIFEROL
  9. VITAMIN C [Concomitant]
     Active Substance: ASCORBIC ACID
  10. TURMERIC [Concomitant]
     Active Substance: TURMERIC
  11. CALCIUM [Concomitant]
     Active Substance: CALCIUM

REACTIONS (8)
  - Headache [None]
  - Limb discomfort [None]
  - Dysgeusia [None]
  - Dry mouth [None]
  - Abdominal discomfort [None]
  - Asthenia [None]
  - Somnolence [None]
  - Dizziness [None]

NARRATIVE: CASE EVENT DATE: 20160907
